FAERS Safety Report 25129243 (Version 4)
Quarter: 2025Q2

REPORT INFORMATION
  Report Type: Spontaneous
  Country: CO (occurrence: CO)
  Receive Date: 20250327
  Receipt Date: 20250516
  Transmission Date: 20250717
  Serious: No
  Sender: PFIZER
  Company Number: CO-PFIZER INC-PV202500034811

PATIENT
  Sex: Male

DRUGS (1)
  1. GENOTROPIN [Suspect]
     Active Substance: SOMATROPIN
     Dosage: 1.4 MG, DAILY
     Dates: start: 202311

REACTIONS (7)
  - Drug dose omission by device [Unknown]
  - Expired device used [Unknown]
  - Poor quality device used [Unknown]
  - Device information output issue [Unknown]
  - Device delivery system issue [Unknown]
  - Product physical consistency issue [Unknown]
  - Device issue [Unknown]

NARRATIVE: CASE EVENT DATE: 20250317
